FAERS Safety Report 5630931-6 (Version None)
Quarter: 2008Q1

REPORT INFORMATION
  Report Type: 
  Country: None (occurrence: None)
  Receive Date: 20080219
  Receipt Date: 20080208
  Transmission Date: 20080703
  Serious: Yes (Hospitalization)
  Sender: FDA-Public Use
  Company Number: US-PFIZER INC-2007030668

PATIENT
  Sex: Female
  Weight: 66 kg

DRUGS (2)
  1. ZIPRASIDONE (CAPS) [Suspect]
     Indication: BIPOLAR I DISORDER
     Route: 048
     Dates: start: 20070131
  2. IBUPROFEN [Concomitant]
     Indication: MUSCLE STRAIN
     Route: 048
     Dates: start: 20070118

REACTIONS (4)
  - CONSTIPATION [None]
  - DUODENITIS [None]
  - GASTRITIS [None]
  - MUSCLE STRAIN [None]
